FAERS Safety Report 7177827-9 (Version None)
Quarter: 2010Q4

REPORT INFORMATION
  Report Type: 
  Country: None (occurrence: None)
  Receive Date: 20101123
  Receipt Date: 20100929
  Transmission Date: 20110411
  Serious: No
  Sender: FDA-Public Use
  Company Number: 019674

PATIENT
  Sex: Female
  Weight: 101 kg

DRUGS (6)
  1. CIMZIA [Suspect]
     Indication: CROHN'S DISEASE
     Dosage: (400 MG 1X/MONTH SUBCUTANEOUS)
     Route: 058
     Dates: start: 20100301, end: 20100803
  2. VICOPROFEN [Concomitant]
  3. FLEXERIL [Concomitant]
  4. HYDROCHLOROTHIAZIDE [Concomitant]
  5. ALPRAZOLAM [Concomitant]
  6. CELEXA [Concomitant]

REACTIONS (7)
  - ABSCESS [None]
  - CROHN'S DISEASE [None]
  - FUNGAL INFECTION [None]
  - OEDEMA PERIPHERAL [None]
  - PYREXIA [None]
  - SUBCUTANEOUS ABSCESS [None]
  - WEIGHT INCREASED [None]
